FAERS Safety Report 6316461-7 (Version None)
Quarter: 2009Q3

REPORT INFORMATION
  Report Type: 
  Country: None (occurrence: None)
  Receive Date: 20090819
  Receipt Date: 20090819
  Transmission Date: 20100115
  Serious: No
  Sender: FDA-Public Use
  Company Number: None

PATIENT
  Age: 52 Year
  Sex: Female
  Weight: 158.759 kg

DRUGS (1)
  1. MIRAPEX [Suspect]
     Indication: RESTLESS LEGS SYNDROME
     Dosage: 4 TABLETS AT BEDTIME PO
     Route: 048
     Dates: start: 20090301, end: 20090802

REACTIONS (2)
  - CARDIOVASCULAR DISORDER [None]
  - PAIN [None]
